FAERS Safety Report 9667844 (Version 2)
Quarter: 2013Q4

REPORT INFORMATION
  Report Type: Report from Study
  Country: US (occurrence: US)
  Receive Date: 20131104
  Receipt Date: 20131127
  Transmission Date: 20140711
  Serious: Yes (Hospitalization)
  Sender: FDA-Public Use
  Company Number: PHHO2013US013984

PATIENT
  Age: 28 Year
  Sex: Female
  Weight: 177 kg

DRUGS (8)
  1. BKM120 [Suspect]
     Indication: GLIOBLASTOMA MULTIFORME
     Dosage: 50 MG, UNK
     Route: 048
     Dates: start: 20130322
  2. AVASTIN [Suspect]
     Indication: GLIOBLASTOMA MULTIFORME
     Dosage: 10 MG/KG, UNK
     Route: 042
     Dates: start: 20130322
  3. HYDRODIURIL [Suspect]
     Indication: HYPERTENSION
     Dosage: 25 MG, UNK
     Dates: start: 20110101, end: 20131024
  4. SIMVASTATIN [Concomitant]
     Indication: DYSLIPIDAEMIA
     Dosage: 40 MG, UNK
     Dates: start: 20100101
  5. SYNTHROID [Concomitant]
     Indication: HYPOTHYROIDISM
     Dosage: 75 UG, UNK
     Dates: start: 20100101
  6. CELEXA [Concomitant]
     Indication: DEPRESSION
     Dosage: 30 MG, UNK
     Dates: start: 20130726
  7. DEPAKOTE [Concomitant]
     Indication: PROPHYLAXIS
     Dosage: 500 MG, UNK
     Dates: start: 20130823
  8. CALCIUM + VITAMIN D [Concomitant]
     Dosage: 500 MG, UNK
     Dates: start: 201302

REACTIONS (1)
  - Syncope [Recovered/Resolved]
